FAERS Safety Report 7206478-2 (Version None)
Quarter: 2010Q4

REPORT INFORMATION
  Report Type: 
  Country: None (occurrence: None)
  Receive Date: 20101217
  Receipt Date: 20101202
  Transmission Date: 20110411
  Serious: Yes (Other)
  Sender: FDA-Public Use
  Company Number: AUR-APL-2010-03066

PATIENT
  Sex: Female

DRUGS (1)
  1. ATENOLOL [Suspect]
     Indication: HYPERTENSION
     Dosage: 1DF-DAILY-ORAL
     Route: 048
     Dates: start: 20091202, end: 20091204

REACTIONS (3)
  - CHOKING SENSATION [None]
  - OESOPHAGEAL DISORDER [None]
  - PARAESTHESIA [None]
